FAERS Safety Report 6966688-6 (Version None)
Quarter: 2010Q3

REPORT INFORMATION
  Report Type: 
  Country: None (occurrence: None)
  Receive Date: 20100906
  Receipt Date: 20100830
  Transmission Date: 20110219
  Serious: No
  Sender: FDA-Public Use
  Company Number: US-BIOGENIDEC-2010BI029890

PATIENT
  Sex: Female

DRUGS (2)
  1. AVONEX [Suspect]
     Indication: MULTIPLE SCLEROSIS
     Route: 030
     Dates: start: 19970913, end: 20030801
  2. AVONEX [Suspect]
     Route: 030
     Dates: start: 20030801

REACTIONS (9)
  - BLOOD GLUCOSE INCREASED [None]
  - CATARACT [None]
  - DEPRESSED LEVEL OF CONSCIOUSNESS [None]
  - FOOT FRACTURE [None]
  - HERPES VIRUS INFECTION [None]
  - HERPES ZOSTER [None]
  - MEMORY IMPAIRMENT [None]
  - OVARIAN CYST [None]
  - POSTMENOPAUSAL HAEMORRHAGE [None]
